FAERS Safety Report 22390831 (Version 1)
Quarter: 2023Q2

REPORT INFORMATION
  Report Type: Report from Study
  Country: GB (occurrence: GB)
  Receive Date: 20230531
  Receipt Date: 20230531
  Transmission Date: 20230722
  Serious: Yes (Hospitalization, Other)
  Sender: FDA-Public Use
  Company Number: GB-ABBVIE-4268536

PATIENT
  Age: 33 Year
  Sex: Female

DRUGS (7)
  1. HUMIRA [Suspect]
     Active Substance: ADALIMUMAB
     Indication: Juvenile idiopathic arthritis
     Route: 058
     Dates: start: 2016, end: 202212
  2. HUMIRA [Suspect]
     Active Substance: ADALIMUMAB
     Route: 058
  3. COCODAMOL [Concomitant]
     Active Substance: ACETAMINOPHEN\CODEINE PHOSPHATE
     Indication: Product used for unknown indication
     Dosage: 30/500
     Route: 048
  4. ALBUTEROL [Concomitant]
     Active Substance: ALBUTEROL
     Indication: Product used for unknown indication
     Route: 055
  5. HYDROXYUREA [Concomitant]
     Active Substance: HYDROXYUREA
     Indication: Product used for unknown indication
     Route: 048
  6. BECLOMETHASONE\FORMOTEROL [Concomitant]
     Active Substance: BECLOMETHASONE\FORMOTEROL
     Indication: Product used for unknown indication
     Route: 055
  7. MONTELUKAST [Concomitant]
     Active Substance: MONTELUKAST SODIUM
     Indication: Product used for unknown indication
     Route: 048

REACTIONS (22)
  - Stoma creation [Recovered/Resolved]
  - Influenza [Recovered/Resolved]
  - Infection [Not Recovered/Not Resolved]
  - Unevaluable event [Unknown]
  - Crohn^s disease [Unknown]
  - Uveitis [Unknown]
  - Pain in extremity [Unknown]
  - Juvenile idiopathic arthritis [Unknown]
  - Fat tissue increased [Unknown]
  - Stoma site inflammation [Unknown]
  - Hepatic steatosis [Unknown]
  - Hernia obstructive [Unknown]
  - Stoma obstruction [Unknown]
  - Intestinal dilatation [Unknown]
  - Atelectasis [Unknown]
  - Inflammatory marker increased [Unknown]
  - Flatulence [Unknown]
  - Stoma site oedema [Unknown]
  - Lymphadenopathy [Unknown]
  - Intra-abdominal fluid collection [Unknown]
  - Seroma [Unknown]
  - Haematoma [Unknown]

NARRATIVE: CASE EVENT DATE: 20221201
